FAERS Safety Report 16747193 (Version 1)
Quarter: 2019Q3

REPORT INFORMATION
  Report Type: Spontaneous
  Country: CA (occurrence: CA)
  Receive Date: 20190827
  Receipt Date: 20190827
  Transmission Date: 20191005
  Serious: Yes (Disabling, Other)
  Sender: FDA-Public Use
  Company Number: CA-SEATTLE GENETICS-2019SGN02895

PATIENT
  Age: 15 Year
  Sex: Female
  Weight: 48 kg

DRUGS (13)
  1. DEXAMETHASONE. [Concomitant]
     Active Substance: DEXAMETHASONE
     Route: 065
  2. VINORELBINE TARTRATE. [Concomitant]
     Active Substance: VINORELBINE TARTRATE
     Route: 042
  3. BUSULFAN. [Concomitant]
     Active Substance: BUSULFAN
     Route: 065
  4. CYCLOPHOSPHAMIDE. [Concomitant]
     Active Substance: CYCLOPHOSPHAMIDE
     Route: 065
  5. GEMCITABINE. [Concomitant]
     Active Substance: GEMCITABINE
     Route: 065
  6. METHYLPREDNISOLONE. [Concomitant]
     Active Substance: METHYLPREDNISOLONE
     Route: 065
  7. VINCRISTINE [Suspect]
     Active Substance: VINCRISTINE
     Indication: HODGKIN^S DISEASE
     Dosage: 1.4 MG/M2, UNK
     Route: 042
  8. DOXORUBICIN [Concomitant]
     Active Substance: DOXORUBICIN
     Route: 042
  9. MELPHALAN. [Concomitant]
     Active Substance: MELPHALAN
     Route: 065
  10. PREDNISONE. [Concomitant]
     Active Substance: PREDNISONE
     Route: 065
  11. ETOPOSIDE. [Concomitant]
     Active Substance: ETOPOSIDE
     Route: 065
  12. ADCETRIS [Suspect]
     Active Substance: BRENTUXIMAB VEDOTIN
     Indication: HODGKIN^S DISEASE
     Dosage: 60.0 MG/M2, UNK
     Route: 042
  13. BLEOMYCIN SULPHATE [Concomitant]
     Active Substance: BLEOMYCIN SULFATE
     Route: 042

REACTIONS (9)
  - Mobility decreased [Recovered/Resolved]
  - Asthenia [Recovered/Resolved]
  - Tremor [Recovered/Resolved]
  - Hypoaesthesia [Recovered/Resolved]
  - Paraesthesia [Recovered/Resolved]
  - Dysgraphia [Recovered/Resolved]
  - Motor dysfunction [Recovered/Resolved]
  - Neurotoxicity [Recovered/Resolved]
  - Neuropathy peripheral [Recovered/Resolved]
